FAERS Safety Report 7943249-3 (Version None)
Quarter: 2011Q4

REPORT INFORMATION
  Report Type: 
  Country: None (occurrence: None)
  Receive Date: 20111128
  Receipt Date: 20111122
  Transmission Date: 20120403
  Serious: Yes (Death, Other)
  Sender: FDA-Public Use
  Company Number: PHHY2011US102280

PATIENT
  Age: 59 Year
  Sex: Female

DRUGS (4)
  1. SANDOSTATIN LAR [Suspect]
     Indication: NEUROENDOCRINE CARCINOMA
     Dosage: 20 MG, EVERY 4 WEEKS
     Route: 030
  2. ETOPOSIDE [Concomitant]
     Dosage: 100 MG/M2, UNK
     Route: 042
  3. CISPLATIN [Concomitant]
     Dosage: 75 MG/M2, UNK
     Route: 042
  4. ETOPOSIDE [Concomitant]
     Dosage: 200 MG/M2, UNK
     Route: 048

REACTIONS (5)
  - BLOOD CHROMOGRANIN A INCREASED [None]
  - DEEP VEIN THROMBOSIS [None]
  - NEOPLASM MALIGNANT [None]
  - HYPERGLYCAEMIA [None]
  - FEBRILE NEUTROPENIA [None]
